FAERS Safety Report 7047932-6 (Version None)
Quarter: 2010Q4

REPORT INFORMATION
  Report Type: 
  Country: None (occurrence: None)
  Receive Date: 20101015
  Receipt Date: 20101014
  Transmission Date: 20110411
  Serious: Yes (Hospitalization)
  Sender: FDA-Public Use
  Company Number: FI-JNJFOC-20070801992

PATIENT
  Age: 73 Year
  Sex: Male

DRUGS (2)
  1. IBUPROFEN [Suspect]
  2. IBUPROFEN [Suspect]
     Indication: OSTEOARTHRITIS
     Dosage: ^HANDFUL QUANTITIES^ DAILY

REACTIONS (3)
  - CARDIAC TAMPONADE [None]
  - MYOCARDIAL INFARCTION [None]
  - OVERDOSE [None]
